FAERS Safety Report 9771265 (Version 1)
Quarter: 2013Q4

REPORT INFORMATION
  Report Type: Spontaneous
  Country: US (occurrence: US)
  Receive Date: 20131218
  Receipt Date: 20131218
  Transmission Date: 20140711
  Serious: Yes (Hospitalization)
  Sender: FDA-Public Use
  Company Number: US-B.I. PHARMACEUTICALS,INC./RIDGEFIELD-2013-BI-41854BP

PATIENT
  Age: 48 Year
  Sex: Male
  Weight: 77 kg

DRUGS (6)
  1. SPIRIVA [Suspect]
     Indication: CHRONIC OBSTRUCTIVE PULMONARY DISEASE
     Route: 055
     Dates: start: 2011
  2. METOPROLOL [Concomitant]
     Indication: HYPERTENSION
     Dosage: 100 MG
     Route: 048
  3. ADVAIR DISKUS [Concomitant]
     Indication: CHRONIC OBSTRUCTIVE PULMONARY DISEASE
     Dosage: FORMULATION: INHALATION SPRAY,  DOSE PER APPLICATION: 250/50
     Route: 055
  4. DEXILANT [Concomitant]
     Dosage: 60 MG
     Route: 048
  5. PROMETHAZINE [Concomitant]
     Indication: NAUSEA
     Route: 048
  6. FLONASE [Concomitant]
     Indication: SINUS DISORDER
     Dosage: FORMULATION: NASAL SPRAY
     Route: 045

REACTIONS (9)
  - Haematochezia [Recovered/Resolved]
  - Vomiting [Recovered/Resolved]
  - Pyrexia [Recovered/Resolved]
  - Asthenia [Not Recovered/Not Resolved]
  - Gait disturbance [Recovered/Resolved]
  - Blood sodium decreased [Recovered/Resolved]
  - Productive cough [Recovered/Resolved]
  - Nausea [Unknown]
  - Fall [Recovered/Resolved]
